FAERS Safety Report 6426783-7 (Version None)
Quarter: 2009Q4

REPORT INFORMATION
  Report Type: 
  Country: None (occurrence: None)
  Receive Date: 20091103
  Receipt Date: 20091103
  Transmission Date: 20100525
  Serious: Yes (Hospitalization)
  Sender: FDA-Public Use
  Company Number: None

PATIENT
  Age: 54 Year
  Sex: Male
  Weight: 108.4 kg

DRUGS (1)
  1. FUROSEMIDE [Suspect]
     Indication: FLUID RETENTION
     Dosage: 10 MG EVERY DAY PO
     Route: 048
     Dates: start: 20080729, end: 20090818

REACTIONS (2)
  - HYPONATRAEMIA [None]
  - HYPOVOLAEMIA [None]
